FAERS Safety Report 4473568-7 (Version None)
Quarter: 2004Q4

REPORT INFORMATION
  Report Type: 
  Country: None (occurrence: None)
  Receive Date: 20041013
  Receipt Date: 20041007
  Transmission Date: 20050328
  Serious: Yes (Life-Threatening, Hospitalization, Other)
  Sender: FDA-Public Use
  Company Number: US-MERCK-0410USA01038

PATIENT
  Age: 19 Year
  Sex: Female

DRUGS (1)
  1. VIOXX [Suspect]
     Route: 048
     Dates: start: 20040101, end: 20040811

REACTIONS (6)
  - ABDOMINAL PAIN [None]
  - ANAEMIA [None]
  - FLUID RETENTION [None]
  - HEADACHE [None]
  - PLATELET COUNT DECREASED [None]
  - WEIGHT DECREASED [None]
